FAERS Safety Report 21649487 (Version 1)
Quarter: 2022Q4

REPORT INFORMATION
  Report Type: Spontaneous
  Country: US (occurrence: US)
  Receive Date: 20221128
  Receipt Date: 20221128
  Transmission Date: 20230113
  Serious: No
  Sender: FDA-Public Use
  Company Number: US-SA-SAC20221118001129

PATIENT
  Sex: Female

DRUGS (11)
  1. DUPIXENT [Suspect]
     Active Substance: DUPILUMAB
     Indication: Dermatitis atopic
     Dosage: UNK
     Route: 065
  2. DUPIXENT [Suspect]
     Active Substance: DUPILUMAB
     Indication: Eczema
  3. DUPIXENT [Suspect]
     Active Substance: DUPILUMAB
     Indication: Asthma
  4. SINGULAIR [Concomitant]
     Active Substance: MONTELUKAST SODIUM
  5. XANAX [Concomitant]
     Active Substance: ALPRAZOLAM
     Dosage: 1 DF, TID
     Route: 048
  6. PULMICORT FLEXHALER [Concomitant]
     Active Substance: BUDESONIDE
     Dosage: UNK UNK, BID (INHALE 2PUFF)
     Route: 055
  7. PROVENTIL HFA [SALBUTAMOL] [Concomitant]
     Dosage: INHALE 2PUFF EVERY 4-6 HOURS AS NEEDED
     Route: 055
  8. FLONASE ALLERGY RELIEF [Concomitant]
     Active Substance: FLUTICASONE PROPIONATE
     Dosage: SPRAY 1-2SPRAY BY INTRANASAL ROUTE EVERY DAY IN EACH NOSTRIL AS NEEDED
  9. ESTROGENS\METHYLTESTOSTERONE [Concomitant]
     Active Substance: ESTROGENS\METHYLTESTOSTERONE
     Dosage: 1 DF, FOR 21CONSECUTIVE DAYS, FOLLOWED BY 7DAYS OFF
     Route: 048
  10. ALLEGRA D-12 HOUR [Concomitant]
     Active Substance: FEXOFENADINE HYDROCHLORIDE\PSEUDOEPHEDRINE HYDROCHLORIDE
     Dosage: 1 DF, BID
     Route: 048
  11. ADVAIR HFA [Concomitant]
     Active Substance: FLUTICASONE PROPIONATE\SALMETEROL XINAFOATE
     Dosage: INHALE 2PUFF 2TIMES EVERY DAY IN THE MORNING AND EVENING
     Route: 055

REACTIONS (9)
  - Stress at work [Unknown]
  - Family stress [Unknown]
  - Panic attack [Unknown]
  - Depressive symptom [Unknown]
  - Dyspnoea [Unknown]
  - Anxiety [Unknown]
  - Gastrointestinal disorder [Unknown]
  - Illness [Unknown]
  - Weight decreased [Unknown]
